FAERS Safety Report 10182404 (Version 1)
Quarter: 2014Q2

REPORT INFORMATION
  Report Type: Spontaneous
  Country: US (occurrence: None)
  Receive Date: 20140519
  Receipt Date: 20140519
  Transmission Date: 20141212
  Serious: Yes (Life-Threatening, Hospitalization, Disabling)
  Sender: FDA-Public Use
  Company Number: None

PATIENT
  Age: 50 Year
  Sex: Female
  Weight: 51.26 kg

DRUGS (16)
  1. METHYLPREDNISOLONE ACETATE [Suspect]
     Indication: INTERVERTEBRAL DISC DEGENERATION
     Dosage: 80MG EACH LESI FACE-80MG + 1 ML
     Dates: start: 20120720, end: 20120817
  2. METHYLPREDNISOLONE ACETATE [Suspect]
     Indication: INTERVERTEBRAL DISC PROTRUSION
     Dosage: 80MG EACH LESI FACE-80MG + 1 ML
     Dates: start: 20120720, end: 20120817
  3. CARDIZEM [Concomitant]
  4. IBUPROFEN [Concomitant]
  5. CARDIZEM [Concomitant]
  6. NARCO [Concomitant]
  7. MORPHINE [Concomitant]
  8. DICLOFENAC [Concomitant]
  9. BACLOFEN [Concomitant]
  10. AMITIZA [Concomitant]
  11. DULOXETINE HCL [Concomitant]
  12. ZOLPIDEM TART [Concomitant]
  13. STOLL SOFTENER [Concomitant]
  14. MIRALAX [Concomitant]
  15. VITAMIN C [Concomitant]
  16. FISH OIL [Concomitant]

REACTIONS (9)
  - Headache [None]
  - Tremor [None]
  - Muscle twitching [None]
  - Abscess fungal [None]
  - Arachnoiditis [None]
  - Myelomalacia [None]
  - Loss of employment [None]
  - Product quality issue [None]
  - Pain [None]
